FAERS Safety Report 10047605 (Version 1)
Quarter: 2014Q1

REPORT INFORMATION
  Report Type: Spontaneous
  Country: AU (occurrence: None)
  Receive Date: 20140327
  Receipt Date: 20140327
  Transmission Date: 20141002
  Serious: Yes (Other)
  Sender: FDA-Public Use
  Company Number: 22014P1002379

PATIENT
  Sex: 0

DRUGS (4)
  1. GABAPENTIN [Suspect]
     Indication: ORTHOPAEDIC PROCEDURE
  2. GABAPENTIN [Suspect]
     Indication: PREOPERATIVE CARE
  3. REGIONAL ANALGESIA [Concomitant]
  4. UNSPECIFIED OPIOIDS [Concomitant]

REACTIONS (1)
  - Respiratory depression [None]
